FAERS Safety Report 22260067 (Version 3)
Quarter: 2023Q2

REPORT INFORMATION
  Report Type: Spontaneous
  Country: US (occurrence: US)
  Receive Date: 20230427
  Receipt Date: 20230620
  Transmission Date: 20230721
  Serious: No
  Sender: FDA-Public Use
  Company Number: US-PFIZER INC-PV202300074670

PATIENT
  Age: 54 Year
  Sex: Male
  Weight: 113.4 kg

DRUGS (4)
  1. CIBINQO [Suspect]
     Active Substance: ABROCITINIB
     Indication: Eczema
     Dosage: 100 MG, 1X/DAY
     Route: 048
     Dates: start: 20230421
  2. VALSARTAN [Suspect]
     Active Substance: VALSARTAN
     Dosage: 320 MG, 1X/DAY
  3. CLINDAMYCIN [Concomitant]
     Active Substance: CLINDAMYCIN
     Dosage: 300 MG, 3X/DAY (TAKING IT FOR A WEEK PRIOR TO CIBINQO)
     Dates: start: 202304
  4. CHLORTHALIDONE [Concomitant]
     Active Substance: CHLORTHALIDONE
     Indication: Blood pressure abnormal
     Dosage: 25 MG (HAS BEEN TAKING IT FOR OVER 3 MONTHS)

REACTIONS (8)
  - Nausea [Recovered/Resolved]
  - Mental disorder [Unknown]
  - Skin laceration [Unknown]
  - Condition aggravated [Unknown]
  - Weight decreased [Unknown]
  - Paraesthesia [Unknown]
  - Hypoaesthesia [Unknown]
  - Hyperaesthesia [Unknown]

NARRATIVE: CASE EVENT DATE: 20230401
